FAERS Safety Report 8557484-7 (Version None)
Quarter: 2012Q3

REPORT INFORMATION
  Report Type: 
  Country: None (occurrence: None)
  Receive Date: 20120801
  Receipt Date: 20120723
  Transmission Date: 20120928
  Serious: Yes (Hospitalization, Other)
  Sender: FDA-Public Use
  Company Number: US-ABBOTT-12P-163-0959363-00

PATIENT
  Age: 35 Year
  Sex: Female

DRUGS (3)
  1. COUMADIN [Concomitant]
     Indication: THROMBOSIS
     Dosage: 7.5MG - 10MG QD
  2. HUMIRA [Suspect]
     Indication: CROHN'S DISEASE
     Dates: start: 20110201, end: 20120201
  3. HUMIRA [Suspect]
     Dates: start: 20120501

REACTIONS (8)
  - DEPRESSION [None]
  - PRODUCTIVE COUGH [None]
  - LAPAROTOMY [None]
  - POST-TRAUMATIC STRESS DISORDER [None]
  - GASTROOESOPHAGEAL REFLUX DISEASE [None]
  - ILEOSTOMY [None]
  - COLITIS [None]
  - BIPOLAR DISORDER [None]
